FAERS Safety Report 4339359-2 (Version None)
Quarter: 2004Q2

REPORT INFORMATION
  Report Type: 
  Country: None (occurrence: None)
  Receive Date: 20040412
  Receipt Date: 20040322
  Transmission Date: 20050107
  Serious: Yes (Death)
  Sender: FDA-Public Use
  Company Number: 20040300248

PATIENT
  Age: 75 Year
  Sex: Male

DRUGS (1)
  1. MORPHINE SULFATE [Suspect]
     Indication: PAIN
     Dosage: 50 MG/ML IT
     Route: 037

REACTIONS (3)
  - CATHETER SITE RELATED REACTION [None]
  - GRANULOMA [None]
  - HYPERSENSITIVITY [None]
